FAERS Safety Report 9161014 (Version 1)
Quarter: 2013Q1

REPORT INFORMATION
  Report Type: Spontaneous
  Country: US (occurrence: US)
  Receive Date: 20130313
  Receipt Date: 20130313
  Transmission Date: 20140127
  Serious: No
  Sender: FDA-Public Use
  Company Number: US-PFIZER INC-2013082645

PATIENT
  Age: 55 Year
  Sex: Female

DRUGS (5)
  1. CARDURA [Suspect]
     Dosage: UNK
  2. GEMFIBROZIL [Suspect]
     Dosage: UNK
  3. ERYTHROMYCIN [Suspect]
     Dosage: UNK
  4. DOXYCYCLINE CALCIUM [Suspect]
     Dosage: UNK
  5. PREDNISONE [Suspect]
     Dosage: UNK

REACTIONS (2)
  - Drug hypersensitivity [Not Recovered/Not Resolved]
  - Rash [Not Recovered/Not Resolved]
